FAERS Safety Report 7325414-1 (Version None)
Quarter: 2011Q1

REPORT INFORMATION
  Report Type: 
  Country: None (occurrence: None)
  Receive Date: 20110302
  Receipt Date: 20110218
  Transmission Date: 20110831
  Serious: Yes (Hospitalization, Other)
  Sender: FDA-Public Use
  Company Number: US-ELI_LILLY_AND_COMPANY-US200909001910

PATIENT
  Sex: Female

DRUGS (6)
  1. ASPIRIN [Concomitant]
  2. FORTEO [Suspect]
     Dosage: 20 UG, DAILY (1/D)
  3. CITALOPRAM [Concomitant]
  4. FORTEO [Suspect]
     Indication: OSTEOPOROSIS
     Dosage: 20 UG, DAILY (1/D)
     Dates: start: 20090603
  5. FORTEO [Suspect]
     Dosage: 20 UG, DAILY (1/D)
  6. VITAMINS NOS [Concomitant]

REACTIONS (8)
  - DIZZINESS [None]
  - BACK PAIN [None]
  - BONE DISORDER [None]
  - FATIGUE [None]
  - ASTHENIA [None]
  - ARTHRITIS [None]
  - GAIT DISTURBANCE [None]
  - DYSSTASIA [None]
